FAERS Safety Report 8795344 (Version 2)
Quarter: 2015Q2

REPORT INFORMATION
  Report Type: Report from Study
  Country: US (occurrence: US)
  Receive Date: 20120918
  Receipt Date: 20150630
  Transmission Date: 20150821
  Serious: Yes (Death)
  Sender: FDA-Public Use
  Company Number: US-ROCHE-1129354

PATIENT
  Sex: Female
  Weight: 46.31 kg

DRUGS (31)
  1. AVASTIN [Suspect]
     Active Substance: BEVACIZUMAB
     Indication: LUNG NEOPLASM MALIGNANT
     Dosage: 06/FEB/2006, 27/FEB/2006, 20/MAR/2006, 10/APR/2006, 01/MAY/2006
     Route: 042
     Dates: start: 20060103
  2. CARBOPLATIN. [Concomitant]
     Active Substance: CARBOPLATIN
     Route: 042
     Dates: start: 20051107
  3. LORAZEPAM. [Concomitant]
     Active Substance: LORAZEPAM
     Route: 048
  4. CARAFATE [Concomitant]
     Active Substance: SUCRALFATE
     Route: 048
  5. AVASTIN [Suspect]
     Active Substance: BEVACIZUMAB
     Indication: LUNG NEOPLASM MALIGNANT
  6. LOPRESSOR [Concomitant]
     Active Substance: METOPROLOL TARTRATE
     Route: 048
  7. ATIVAN [Concomitant]
     Active Substance: LORAZEPAM
  8. ANZEMET [Concomitant]
     Active Substance: DOLASETRON MESYLATE
     Route: 065
  9. DARVOCET [Concomitant]
     Active Substance: ACETAMINOPHEN\PROPOXYPHENE HYDROCHLORIDE
     Dosage: PRN
     Route: 048
  10. DIGOXIN. [Concomitant]
     Active Substance: DIGOXIN
     Route: 048
  11. GEMZAR [Concomitant]
     Active Substance: GEMCITABINE HYDROCHLORIDE
     Route: 065
  12. DECADRON [Concomitant]
     Active Substance: DEXAMETHASONE
     Route: 042
  13. XYLOCAINE [Concomitant]
     Active Substance: LIDOCAINE HYDROCHLORIDE
     Dosage: 20MG/ML, PRN
     Route: 048
  14. LIDOCAINE. [Concomitant]
     Active Substance: LIDOCAINE
  15. AVASTIN [Suspect]
     Active Substance: BEVACIZUMAB
     Indication: ANAEMIA
  16. ANZEMET [Concomitant]
     Active Substance: DOLASETRON MESYLATE
     Route: 065
  17. TAXOL [Concomitant]
     Active Substance: PACLITAXEL
     Route: 065
  18. TAGAMET [Concomitant]
     Active Substance: CIMETIDINE
     Route: 065
  19. ARANESP [Concomitant]
     Active Substance: DARBEPOETIN ALFA
     Route: 065
  20. OXYCODONE HCL [Concomitant]
     Active Substance: OXYCODONE HYDROCHLORIDE
     Dosage: PRN
     Route: 048
  21. LOMOTIL (UNITED STATES) [Concomitant]
  22. PHENERGAN [Concomitant]
     Active Substance: PROMETHAZINE HYDROCHLORIDE
     Indication: NAUSEA
     Route: 042
  23. CIMETIDINE [Concomitant]
     Active Substance: CIMETIDINE
     Route: 042
  24. TAXOL [Concomitant]
     Active Substance: PACLITAXEL
     Route: 065
  25. NEXIUM [Concomitant]
     Active Substance: ESOMEPRAZOLE MAGNESIUM
     Route: 048
  26. LORAZEPAM. [Concomitant]
     Active Substance: LORAZEPAM
     Dosage: QHS
     Route: 048
  27. DIGOXIN. [Concomitant]
     Active Substance: DIGOXIN
     Route: 065
  28. PROCRIT [Concomitant]
     Active Substance: ERYTHROPOIETIN
     Route: 058
  29. PERCOCET [Concomitant]
     Active Substance: ACETAMINOPHEN\OXYCODONE HYDROCHLORIDE
     Dosage: PRN
     Route: 048
  30. DARVOCET [Concomitant]
     Active Substance: ACETAMINOPHEN\PROPOXYPHENE HYDROCHLORIDE
     Route: 048
  31. COUMADIN [Concomitant]
     Active Substance: WARFARIN SODIUM
     Dosage: 5MG MONDAY TO FRIDYA, 2.5MG SATDAY SUNDAY
     Route: 048

REACTIONS (17)
  - Death [Fatal]
  - Emotional distress [Unknown]
  - Paraesthesia [Unknown]
  - Fatigue [Unknown]
  - Mucosal inflammation [Recovering/Resolving]
  - Odynophagia [Recovering/Resolving]
  - Hypoaesthesia [Unknown]
  - Alopecia [Unknown]
  - Asthenia [Unknown]
  - Salivary hypersecretion [Unknown]
  - Dysphagia [Recovering/Resolving]
  - Nausea [Unknown]
  - Diarrhoea [Unknown]
  - Productive cough [Recovered/Resolved]
  - Onychomadesis [Unknown]
  - Dyspnoea [Unknown]
  - Conjunctival disorder [Unknown]
